FAERS Safety Report 21673585 (Version 1)
Quarter: 2022Q4

REPORT INFORMATION
  Report Type: Spontaneous
  Country: US (occurrence: US)
  Receive Date: 20221202
  Receipt Date: 20221202
  Transmission Date: 20230113
  Serious: Yes (Hospitalization, Other)
  Sender: FDA-Public Use
  Company Number: US-SANOFI-01387710

PATIENT
  Age: 73 Year
  Sex: Male

DRUGS (1)
  1. LANTUS SOLOSTAR [Suspect]
     Active Substance: INSULIN GLARGINE
     Indication: Type 2 diabetes mellitus
     Dosage: 25 UNITS QD

REACTIONS (7)
  - Chills [Unknown]
  - Pyrexia [Unknown]
  - Diabetes mellitus [Unknown]
  - Ageusia [Unknown]
  - Blood glucose increased [Unknown]
  - Anosmia [Unknown]
  - Visual impairment [Unknown]
